FAERS Safety Report 16074298 (Version 2)
Quarter: 2019Q1

REPORT INFORMATION
  Report Type: Spontaneous
  Country: CN (occurrence: CN)
  Receive Date: 20190314
  Receipt Date: 20190326
  Transmission Date: 20190418
  Serious: Yes (Other)
  Sender: FDA-Public Use
  Company Number: CN-ALLERGAN-1910782US

PATIENT
  Sex: Female

DRUGS (3)
  1. SHI HUI DA [Concomitant]
     Active Substance: LEVAMLODIPINE BESYLATE
     Indication: BLOOD PRESSURE MEASUREMENT
     Dosage: 0.5 TABLET WHEN THE BLOOD PRESSURE WAS STABLE. WHEN THE BLOOD PRESSURE WAS NOT STABLE, THE PATIENT T
     Route: 065
  2. CITALOPRAM HYDROBROMIDE - BP [Suspect]
     Active Substance: CITALOPRAM HYDROBROMIDE
     Dosage: 20 MG, QD
     Route: 065
     Dates: start: 2007, end: 2016
  3. CITALOPRAM HYDROBROMIDE - BP [Suspect]
     Active Substance: CITALOPRAM HYDROBROMIDE
     Indication: DEPRESSION
     Dosage: 10 MG, QD
     Route: 065
     Dates: start: 2016

REACTIONS (3)
  - Mucopolysaccharidosis II [Recovered/Resolved]
  - Cataract [Unknown]
  - Depression [Unknown]

NARRATIVE: CASE EVENT DATE: 2015
